FAERS Safety Report 12556389 (Version 3)
Quarter: 2016Q3

REPORT INFORMATION
  Report Type: Spontaneous
  Country: IT (occurrence: IT)
  Receive Date: 20160714
  Receipt Date: 20160729
  Transmission Date: 20161109
  Serious: Yes (Other)
  Sender: FDA-Public Use
  Company Number: IT-PFIZER INC-2016337225

PATIENT
  Age: 72 Year
  Sex: Male

DRUGS (8)
  1. NEUPRO [Suspect]
     Active Substance: ROTIGOTINE
     Dosage: UNK
  2. APIDRA [Suspect]
     Active Substance: INSULIN GLULISINE
     Indication: DIABETES MELLITUS
     Dosage: UNK
  3. MADOPAR [Suspect]
     Active Substance: BENSERAZIDE HYDROCHLORIDE\LEVODOPA
     Dosage: UNK
  4. BLOPRESS [Suspect]
     Active Substance: CANDESARTAN CILEXETIL
     Dosage: 2X/DAY
  5. UROREC [Suspect]
     Active Substance: SILODOSIN
     Dosage: 0.8 MG, UNK
  6. LANTUS [Suspect]
     Active Substance: INSULIN GLARGINE
     Indication: DIABETES MELLITUS
     Dosage: 6 IU, UNK
  7. AVODART [Suspect]
     Active Substance: DUTASTERIDE
     Dosage: 0.5 MG, 1X/DAY (IN THE MORNING)
  8. ZOLOFT [Suspect]
     Active Substance: SERTRALINE HYDROCHLORIDE
     Dosage: UNK

REACTIONS (6)
  - Nausea [Unknown]
  - Paraesthesia [Unknown]
  - Hypoglycaemia [Unknown]
  - Joint swelling [Unknown]
  - Capillary disorder [Unknown]
  - Vertigo [Unknown]
